FAERS Safety Report 9312241 (Version 2)
Quarter: 2013Q2

REPORT INFORMATION
  Report Type: Spontaneous
  Country: US (occurrence: US)
  Receive Date: 20130528
  Receipt Date: 20130607
  Transmission Date: 20140414
  Serious: Yes (Other)
  Sender: FDA-Public Use
  Company Number: US-BAYER-2013-064263

PATIENT
  Age: 35 Year
  Sex: Female

DRUGS (1)
  1. BEYAZ [Suspect]
     Indication: POLYCYSTIC OVARIES
     Dosage: UNK
     Dates: start: 2011

REACTIONS (6)
  - Weight increased [None]
  - Hypomenorrhoea [None]
  - Vaginal haemorrhage [None]
  - Therapeutic product ineffective [None]
  - Abdominal distension [None]
  - Off label use [None]
